FAERS Safety Report 5295785-9 (Version None)
Quarter: 2007Q2

REPORT INFORMATION
  Report Type: 
  Country: None (occurrence: None)
  Receive Date: 20070410
  Receipt Date: 20070410
  Transmission Date: 20071010
  Serious: Yes (Death)
  Sender: FDA-Public Use
  Company Number: None

PATIENT
  Age: 69 Year
  Sex: Male
  Weight: 83.9154 kg

DRUGS (1)
  1. TAMIFLU [Suspect]
     Indication: INFLUENZA LIKE ILLNESS
     Dosage: ONE PER DAY PO
     Route: 048
     Dates: start: 20070326, end: 20070327

REACTIONS (1)
  - DEATH [None]
